FAERS Safety Report 6787986-5 (Version None)
Quarter: 2010Q2

REPORT INFORMATION
  Report Type: 
  Country: None (occurrence: None)
  Receive Date: 20100623
  Receipt Date: 20071129
  Transmission Date: 20101027
  Serious: No
  Sender: FDA-Public Use
  Company Number: US-PFIZER INC-2007087226

PATIENT
  Sex: Female
  Weight: 23 kg

DRUGS (2)
  1. R-GENE 10 [Suspect]
     Indication: ARGININOSUCCINATE SYNTHETASE DEFICIENCY
     Route: 048
     Dates: start: 20071002, end: 20071010
  2. SODIUM PHENYLBUTYRATE [Concomitant]
     Route: 048

REACTIONS (6)
  - ABDOMINAL PAIN [None]
  - ABDOMINAL PAIN UPPER [None]
  - DECREASED APPETITE [None]
  - DIARRHOEA [None]
  - INCORRECT ROUTE OF DRUG ADMINISTRATION [None]
  - NAUSEA [None]
